FAERS Safety Report 13615694 (Version 1)
Quarter: 2017Q2

REPORT INFORMATION
  Report Type: Spontaneous
  Country: FR (occurrence: FR)
  Receive Date: 20170606
  Receipt Date: 20170606
  Transmission Date: 20170830
  Serious: Yes (Life-Threatening)
  Sender: FDA-Public Use
  Company Number: FR-PFIZER INC-2017240814

PATIENT
  Age: 24 Year
  Sex: Male

DRUGS (8)
  1. PROPOFOL. [Suspect]
     Active Substance: PROPOFOL
     Indication: GENERAL ANAESTHESIA
     Dosage: 350 MG, UNK
     Route: 042
     Dates: start: 20170515, end: 20170515
  2. KETAMINE RENAUDIN [Concomitant]
     Active Substance: KETAMINE
     Indication: GENERAL ANAESTHESIA
     Dosage: 30 MG, UNK
     Route: 042
     Dates: start: 20170515, end: 20170515
  3. LYRICA [Concomitant]
     Active Substance: PREGABALIN
  4. VANCOMYCINE SANDOZ [Suspect]
     Active Substance: VANCOMYCIN
     Indication: GENERAL ANAESTHESIA
     Dosage: 1.5 G, UNK
     Route: 042
     Dates: start: 20170515, end: 20170515
  5. VENTOLINE /00139502/ [Concomitant]
     Dosage: UNK UNK, AS NEEDED
  6. SUFENTANIL /00723502/ [Concomitant]
     Active Substance: SUFENTANIL CITRATE
     Indication: GENERAL ANAESTHESIA
     Dosage: 5 UG, UNK
     Route: 042
     Dates: start: 20170515, end: 20170515
  7. MIDAZOLAM [Suspect]
     Active Substance: MIDAZOLAM HYDROCHLORIDE
     Indication: GENERAL ANAESTHESIA
     Dosage: 1 MG, UNK
     Route: 042
     Dates: start: 20170515, end: 20170515
  8. ATRACURIUM BESILATE [Suspect]
     Active Substance: ATRACURIUM BESYLATE
     Indication: GENERAL ANAESTHESIA
     Dosage: 50 MG, UNK
     Route: 042
     Dates: start: 20170515, end: 20170515

REACTIONS (5)
  - Bronchospasm [Recovered/Resolved]
  - Tachycardia [Recovered/Resolved]
  - Generalised erythema [Recovered/Resolved]
  - Hypotension [Recovered/Resolved]
  - Anaphylactic shock [Recovered/Resolved]

NARRATIVE: CASE EVENT DATE: 20170515
